FAERS Safety Report 11791698 (Version 1)
Quarter: 2015Q4

REPORT INFORMATION
  Report Type: Spontaneous
  Country: DE (occurrence: DE)
  Receive Date: 20151201
  Receipt Date: 20151201
  Transmission Date: 20160305
  Serious: Yes (Death, Hospitalization)
  Sender: FDA-Public Use
  Company Number: DE-ASTRAZENECA-2015SF20340

PATIENT
  Age: 75 Year
  Sex: Male

DRUGS (10)
  1. SEROQUEL [Suspect]
     Active Substance: QUETIAPINE FUMARATE
     Indication: DELIRIUM
     Route: 048
     Dates: start: 20141129, end: 20141207
  2. TAVOR [Concomitant]
     Active Substance: LORAZEPAM
     Indication: DELIRIUM
     Dosage: 1.5-0.5 MG
     Dates: start: 20141119, end: 20141130
  3. METOPROLOL [Concomitant]
     Active Substance: METOPROLOL
     Route: 048
     Dates: end: 20141207
  4. SEROQUEL [Suspect]
     Active Substance: QUETIAPINE FUMARATE
     Indication: DELIRIUM
     Route: 048
     Dates: start: 20141119, end: 20141123
  5. RAMIPRIL. [Concomitant]
     Active Substance: RAMIPRIL
     Route: 048
     Dates: end: 20141207
  6. SEROQUEL [Suspect]
     Active Substance: QUETIAPINE FUMARATE
     Indication: DELIRIUM
     Route: 048
     Dates: start: 20141124, end: 20141128
  7. ASPIRIN. [Concomitant]
     Active Substance: ASPIRIN
     Route: 048
     Dates: end: 20141207
  8. TOREM [Concomitant]
     Active Substance: TORSEMIDE
     Route: 048
     Dates: end: 20141207
  9. FLOXAL [Concomitant]
     Active Substance: OFLOXACIN
     Dates: start: 20141201, end: 20141207
  10. ALLOPURINOL. [Concomitant]
     Active Substance: ALLOPURINOL
     Route: 048
     Dates: end: 20141207

REACTIONS (2)
  - Circulatory collapse [Unknown]
  - Death [Fatal]

NARRATIVE: CASE EVENT DATE: 20141207
